FAERS Safety Report 8211280-9 (Version None)
Quarter: 2012Q1

REPORT INFORMATION
  Report Type: 
  Country: None (occurrence: None)
  Receive Date: 20120315
  Receipt Date: 20120313
  Transmission Date: 20120608
  Serious: No
  Sender: FDA-Public Use
  Company Number: US-PFIZER INC-2012030823

PATIENT
  Sex: Female
  Weight: 77.098 kg

DRUGS (2)
  1. LISINOPRIL [Concomitant]
     Indication: HYPERTENSION
     Dosage: UNK
  2. LIPITOR [Suspect]
     Indication: BLOOD CHOLESTEROL INCREASED
     Dosage: 80 MG, 1X/DAY
     Route: 048
     Dates: start: 20120101, end: 20120130

REACTIONS (4)
  - LOW DENSITY LIPOPROTEIN ABNORMAL [None]
  - PAIN IN EXTREMITY [None]
  - HIGH DENSITY LIPOPROTEIN ABNORMAL [None]
  - MYALGIA [None]
